FAERS Safety Report 11448483 (Version 1)
Quarter: 2015Q3

REPORT INFORMATION
  Report Type: Spontaneous
  Country: US (occurrence: US)
  Receive Date: 20150902
  Receipt Date: 20150902
  Transmission Date: 20151125
  Serious: No
  Sender: FDA-Public Use
  Company Number: US-BAYER-2015-408063

PATIENT
  Age: 43 Year
  Sex: Female

DRUGS (2)
  1. CLIMARA [Suspect]
     Active Substance: ESTRADIOL
     Indication: HOT FLUSH
     Dosage: DAILY DOSE .1 MG/24HR
     Route: 062
     Dates: start: 20150803
  2. CLIMARA [Suspect]
     Active Substance: ESTRADIOL
     Indication: BREAST ENLARGEMENT
     Dosage: DAILY DOSE .025 MG/24HR
     Route: 062
     Dates: start: 201412, end: 201505

REACTIONS (5)
  - Mammoplasty [None]
  - Product adhesion issue [None]
  - Hot flush [None]
  - Off label use [None]
  - Off label use [Recovered/Resolved]

NARRATIVE: CASE EVENT DATE: 201412
